FAERS Safety Report 24365829 (Version 1)
Quarter: 2024Q3

REPORT INFORMATION
  Report Type: Other
  Country: GB (occurrence: GB)
  Receive Date: 20240926
  Receipt Date: 20240926
  Transmission Date: 20241016
  Serious: Yes (Other)
  Sender: GLENMARK
  Company Number: None

PATIENT

DRUGS (2)
  1. MONTELUKAST SODIUM [Suspect]
     Active Substance: MONTELUKAST\MONTELUKAST SODIUM
     Indication: Cough
     Dosage: 4 MILLIGRAM (FORMULATION: TABLET)
     Route: 065
     Dates: end: 20240812
  2. MONTELUKAST SODIUM [Suspect]
     Active Substance: MONTELUKAST\MONTELUKAST SODIUM
     Indication: Lower respiratory tract infection

REACTIONS (9)
  - Anger [Recovered/Resolved]
  - Defiant behaviour [Recovered/Resolved]
  - Emotional disorder [Recovering/Resolving]
  - Thinking abnormal [Recovering/Resolving]
  - Psychomotor hyperactivity [Recovering/Resolving]
  - Aggression [Recovering/Resolving]
  - Impulsive behaviour [Unknown]
  - Screaming [Unknown]
  - Crying [Unknown]

NARRATIVE: CASE EVENT DATE: 20240201
